FAERS Safety Report 15920388 (Version 2)
Quarter: 2019Q2

REPORT INFORMATION
  Report Type: Spontaneous
  Country: US (occurrence: US)
  Receive Date: 20190205
  Receipt Date: 20190509
  Transmission Date: 20190711
  Serious: Yes (Other)
  Sender: FDA-Public Use
  Company Number: US-ASTRAZENECA-2018SF21798

PATIENT
  Age: 26948 Day
  Sex: Female

DRUGS (35)
  1. NEXIUM [Suspect]
     Active Substance: ESOMEPRAZOLE MAGNESIUM
     Indication: ULCER
     Route: 048
     Dates: start: 1978, end: 1984
  2. CLOPIDOGREL [Concomitant]
     Active Substance: CLOPIDOGREL BISULFATE
  3. SPIRONOLACTONE. [Concomitant]
     Active Substance: SPIRONOLACTONE
  4. CEPHALEXIN. [Concomitant]
     Active Substance: CEPHALEXIN
  5. ATORVASTATIN [Concomitant]
     Active Substance: ATORVASTATIN
  6. BIOTIN [Concomitant]
     Active Substance: BIOTIN
  7. FAMOTIDINE. [Concomitant]
     Active Substance: FAMOTIDINE
  8. ZANTAC [Concomitant]
     Active Substance: RANITIDINE HYDROCHLORIDE
  9. NEXIUM [Suspect]
     Active Substance: ESOMEPRAZOLE MAGNESIUM
     Indication: ULCER
     Route: 048
     Dates: start: 1996, end: 2010
  10. PRILOSEC [Suspect]
     Active Substance: OMEPRAZOLE MAGNESIUM
     Indication: ULCER
     Route: 048
     Dates: start: 19980916
  11. ALENDRONATE [Concomitant]
     Active Substance: ALENDRONATE SODIUM
  12. LEVAQUIN [Concomitant]
     Active Substance: LEVOFLOXACIN
  13. PEPCID [Concomitant]
     Active Substance: FAMOTIDINE
  14. TUMS [Concomitant]
     Active Substance: CALCIUM CARBONATE
  15. CARVEDILOL. [Concomitant]
     Active Substance: CARVEDILOL
  16. LIPITOR [Concomitant]
     Active Substance: ATORVASTATIN CALCIUM
  17. PROTONIX [Suspect]
     Active Substance: PANTOPRAZOLE SODIUM
     Indication: ULCER
     Route: 065
     Dates: start: 1996, end: 2010
  18. PROTONIX [Suspect]
     Active Substance: PANTOPRAZOLE SODIUM
     Indication: ULCER
     Dosage: GENERIC
     Route: 065
     Dates: start: 2014
  19. PRAVASTATIN. [Concomitant]
     Active Substance: PRAVASTATIN
  20. ATORVASTATIN [Concomitant]
     Active Substance: ATORVASTATIN
  21. GABAPENTIN. [Concomitant]
     Active Substance: GABAPENTIN
  22. PRILOSEC [Suspect]
     Active Substance: OMEPRAZOLE MAGNESIUM
     Indication: ULCER
     Route: 048
     Dates: start: 1984, end: 2001
  23. FLOVENT [Concomitant]
     Active Substance: FLUTICASONE PROPIONATE
  24. NEXIUM [Suspect]
     Active Substance: ESOMEPRAZOLE MAGNESIUM
     Indication: ULCER
     Route: 048
     Dates: start: 20011115
  25. PRILOSEC [Suspect]
     Active Substance: OMEPRAZOLE MAGNESIUM
     Indication: ULCER
     Dosage: GENERIC
     Route: 048
     Dates: start: 2008, end: 2012
  26. PROTONIX [Suspect]
     Active Substance: PANTOPRAZOLE SODIUM
     Indication: ULCER
     Route: 065
     Dates: start: 20100802
  27. LEVOXYL [Concomitant]
     Active Substance: LEVOTHYROXINE SODIUM
  28. ASPIRIN. [Concomitant]
     Active Substance: ASPIRIN
  29. METFORMIN [Concomitant]
     Active Substance: METFORMIN HYDROCHLORIDE
  30. PRAVASTATIN. [Concomitant]
     Active Substance: PRAVASTATIN
  31. VITAMIN D2 [Concomitant]
     Active Substance: ERGOCALCIFEROL
  32. PROCARDIA [Concomitant]
     Active Substance: NIFEDIPINE
  33. FUROSEMIDE. [Concomitant]
     Active Substance: FUROSEMIDE
  34. FUROSEMIDE. [Concomitant]
     Active Substance: FUROSEMIDE
  35. LOSARTAN. [Concomitant]
     Active Substance: LOSARTAN

REACTIONS (1)
  - Chronic kidney disease [Not Recovered/Not Resolved]

NARRATIVE: CASE EVENT DATE: 20160427
